FAERS Safety Report 14480714 (Version 1)
Quarter: 2018Q1

REPORT INFORMATION
  Report Type: Spontaneous
  Country: FR (occurrence: FR)
  Receive Date: 20180202
  Receipt Date: 20180202
  Transmission Date: 20180509
  Serious: Yes (Hospitalization)
  Sender: FDA-Public Use
  Company Number: FR-MYLANLABS-2018M1006125

PATIENT
  Age: 65 Year
  Sex: Female
  Weight: 78 kg

DRUGS (5)
  1. TRAMADOL. [Suspect]
     Active Substance: TRAMADOL
     Dosage: 50 MG, UNK
     Route: 048
  2. TRAMADOL. [Suspect]
     Active Substance: TRAMADOL
     Dosage: 50 MG, UNK
     Route: 048
  3. TRAMADOL. [Suspect]
     Active Substance: TRAMADOL
     Indication: SCIATICA
     Route: 048
  4. LEVOTHYROX [Concomitant]
     Active Substance: LEVOTHYROXINE
     Indication: HYPOTHYROIDISM
     Route: 048
  5. PREDNISONE. [Suspect]
     Active Substance: PREDNISONE
     Indication: SCIATICA
     Dosage: UNK
     Route: 048

REACTIONS (1)
  - Angle closure glaucoma [Recovering/Resolving]

NARRATIVE: CASE EVENT DATE: 20170925
